FAERS Safety Report 9519673 (Version 1)
Quarter: 2013Q3

REPORT INFORMATION
  Report Type: Spontaneous
  Country: US (occurrence: None)
  Receive Date: 20130911
  Receipt Date: 20130911
  Transmission Date: 20140515
  Serious: Yes (Life-Threatening)
  Sender: FDA-Public Use
  Company Number: None

PATIENT
  Age: 49 Year
  Sex: Male

DRUGS (1)
  1. TEMOZOLOMIDE [Suspect]
     Indication: PANCREATIC CARCINOMA
     Dosage: 7 CAPS QD ORAL
     Route: 048

REACTIONS (5)
  - Febrile neutropenia [None]
  - Oral pain [None]
  - Nausea [None]
  - Vomiting [None]
  - Feeling abnormal [None]
